FAERS Safety Report 25148948 (Version 1)
Quarter: 2025Q2

REPORT INFORMATION
  Report Type: Report from Study
  Country: DK (occurrence: DK)
  Receive Date: 20250402
  Receipt Date: 20250402
  Transmission Date: 20250716
  Serious: Yes (Death, Other)
  Sender: AUROBINDO
  Company Number: DK-AUROBINDO-AUR-APL-2025-017395

PATIENT

DRUGS (3)
  1. FLUCONAZOLE [Suspect]
     Active Substance: FLUCONAZOLE
     Indication: Antifungal treatment
     Route: 065
  2. ANIDULAFUNGIN [Concomitant]
     Active Substance: ANIDULAFUNGIN
     Indication: Antifungal treatment
     Route: 065
  3. AMPHOTERICIN B [Concomitant]
     Active Substance: AMPHOTERICIN B
     Indication: Antifungal treatment
     Route: 065

REACTIONS (1)
  - Death [Fatal]
